FAERS Safety Report 10187681 (Version 1)
Quarter: 2014Q2

REPORT INFORMATION
  Report Type: Spontaneous
  Country: US (occurrence: US)
  Receive Date: 20140522
  Receipt Date: 20140522
  Transmission Date: 20141212
  Serious: No
  Sender: FDA-Public Use
  Company Number: US-SANOFI-AVENTIS-2013SA077938

PATIENT
  Age: 53 Year
  Sex: Male

DRUGS (11)
  1. LANTUS SOLOSTAR [Suspect]
     Indication: TYPE 2 DIABETES MELLITUS
     Dosage: TAKEN FROM-3-4 YEARS AGO DOSE:50 UNIT(S)
     Route: 051
  2. NOVOLOG [Suspect]
     Route: 065
  3. SOLOSTAR [Concomitant]
     Indication: TYPE 2 DIABETES MELLITUS
     Dosage: TAKEN FROM- 3-4 YEARS AGO.
  4. ALL OTHER THERAPEUTIC PRODUCTS [Concomitant]
  5. XANAX [Concomitant]
  6. AMBIEN [Concomitant]
  7. WATER PILLS [Concomitant]
  8. LYRICA [Concomitant]
     Indication: NEUROPATHY PERIPHERAL
  9. GABAPENTIN [Concomitant]
  10. METFORMIN [Concomitant]
  11. ALL OTHER THERAPEUTIC PRODUCTS [Concomitant]

REACTIONS (3)
  - Visual acuity reduced [Not Recovered/Not Resolved]
  - Condition aggravated [Not Recovered/Not Resolved]
  - Dysphagia [Not Recovered/Not Resolved]
